FAERS Safety Report 7809425-5 (Version None)
Quarter: 2011Q4

REPORT INFORMATION
  Report Type: 
  Country: None (occurrence: None)
  Receive Date: 20111006
  Receipt Date: 20110922
  Transmission Date: 20120403
  Serious: Yes (Other)
  Sender: FDA-Public Use
  Company Number: 2008SP013475

PATIENT
  Age: 27 Year
  Sex: Female

DRUGS (2)
  1. PEGASYS [Suspect]
     Indication: HEPATITIS C
     Dates: start: 20040305, end: 20040406
  2. REBETOL [Suspect]
     Indication: HEPATITIS C
     Dates: start: 20040305, end: 20040406

REACTIONS (5)
  - ANAEMIA [None]
  - HYPERTHYROIDISM [None]
  - DEPRESSION [None]
  - THROMBOCYTOPENIA [None]
  - NEUTROPENIA [None]
